FAERS Safety Report 8531400-6 (Version None)
Quarter: 2012Q3

REPORT INFORMATION
  Report Type: 
  Country: None (occurrence: None)
  Receive Date: 20120723
  Receipt Date: 20120716
  Transmission Date: 20120928
  Serious: Yes (Other)
  Sender: FDA-Public Use
  Company Number: DE-BRISTOL-MYERS SQUIBB COMPANY-16704934

PATIENT
  Age: 61 Year
  Sex: Female
  Weight: 107 kg

DRUGS (1)
  1. ETOPOPHOS PRESERVATIVE FREE [Suspect]
     Indication: CHEMOTHERAPY
     Dosage: 1DF=1.5 G/M2,2900MG:TOTAL. INF
     Route: 042
     Dates: start: 20120621

REACTIONS (2)
  - OVERDOSE [None]
  - INAPPROPRIATE SCHEDULE OF DRUG ADMINISTRATION [None]
